FAERS Safety Report 19429154 (Version 4)
Quarter: 2025Q1

REPORT INFORMATION
  Report Type: Spontaneous
  Country: JP (occurrence: JP)
  Receive Date: 20210617
  Receipt Date: 20250307
  Transmission Date: 20250409
  Serious: Yes (Hospitalization)
  Sender: ROCHE
  Company Number: JP-CHUGAI-A2021013516AA

PATIENT
  Age: 67 Year
  Sex: Male
  Weight: 59.0 kg

DRUGS (13)
  1. TECENTRIQ [Suspect]
     Active Substance: ATEZOLIZUMAB
     Indication: Non-small cell lung cancer
     Dosage: 1200 MILLIGRAM, ONCE/4WEEKS
     Route: 042
     Dates: start: 20210115, end: 20210213
  2. AVASTIN [Suspect]
     Active Substance: BEVACIZUMAB
     Indication: Non-small cell lung cancer
     Dosage: 800 MILLIGRAM, ONCE/4WEEKS
     Route: 042
     Dates: start: 20210115, end: 20210213
  3. CARBOPLATIN [Suspect]
     Active Substance: CARBOPLATIN
     Indication: Non-small cell lung cancer
     Route: 042
     Dates: start: 20210115, end: 20210213
  4. PACLITAXEL [Suspect]
     Active Substance: PACLITAXEL
     Indication: Non-small cell lung cancer
     Route: 042
     Dates: start: 20210115, end: 20210213
  5. ACOTIAMIDE HYDROCHLORIDE [Concomitant]
     Active Substance: ACOTIAMIDE HYDROCHLORIDE
     Route: 065
     Dates: start: 20170610
  6. NORVASC [Concomitant]
     Active Substance: AMLODIPINE BESYLATE
     Route: 065
     Dates: start: 20170805
  7. TENORMIN [Concomitant]
     Active Substance: ATENOLOL
     Route: 065
     Dates: start: 20170805
  8. VONOPRAZAN FUMARATE [Concomitant]
     Active Substance: VONOPRAZAN FUMARATE
     Route: 065
     Dates: start: 20180501
  9. BIO-THREE [Concomitant]
     Active Substance: HERBALS
     Route: 065
     Dates: start: 20180910
  10. EMEND [Concomitant]
     Active Substance: APREPITANT
     Route: 065
     Dates: start: 20210115, end: 20210117
  11. EMEND [Concomitant]
     Active Substance: APREPITANT
     Route: 065
     Dates: start: 20210213, end: 20210215
  12. DEXAMETHASONE [Concomitant]
     Active Substance: DEXAMETHASONE
  13. METHYLPREDNISOLONE [Concomitant]
     Active Substance: METHYLPREDNISOLONE
     Indication: Acute lung injury

REACTIONS (1)
  - Autoimmune aplastic anaemia [Recovered/Resolved]

NARRATIVE: CASE EVENT DATE: 20210319
